FAERS Safety Report 7872109-1 (Version None)
Quarter: 2011Q4

REPORT INFORMATION
  Report Type: 
  Country: None (occurrence: None)
  Receive Date: 20111014
  Receipt Date: 20101013
  Transmission Date: 20120403
  Serious: Yes (Other)
  Sender: FDA-Public Use
  Company Number: 1000016800

PATIENT
  Sex: Female

DRUGS (1)
  1. LEXAPRO [Suspect]

REACTIONS (1)
  - SEROTONIN SYNDROME [None]
